FAERS Safety Report 11248012 (Version 1)
Quarter: 2015Q3

REPORT INFORMATION
  Report Type: Spontaneous
  Country: IE (occurrence: None)
  Receive Date: 20150706
  Receipt Date: 20150706
  Transmission Date: 20151125
  Serious: Yes (Other)
  Sender: FDA-Public Use
  Company Number: CO-PL-IE-2015-046

PATIENT
  Age: 47 Year
  Sex: Female

DRUGS (6)
  1. PLAQUENIL [Suspect]
     Active Substance: HYDROXYCHLOROQUINE SULFATE
     Indication: ARTHRALGIA
     Route: 048
     Dates: start: 20141102, end: 20141105
  2. NEO MERCAZOLE (CARBIMAZOLE) [Concomitant]
  3. MOMETASONE [Concomitant]
     Active Substance: MOMETASONE
  4. PLAQUENIL [Suspect]
     Active Substance: HYDROXYCHLOROQUINE SULFATE
     Indication: SJOGREN^S SYNDROME
     Route: 048
     Dates: start: 20141102, end: 20141105
  5. PLAQUENIL [Suspect]
     Active Substance: HYDROXYCHLOROQUINE SULFATE
     Indication: FATIGUE
     Route: 048
     Dates: start: 20141102, end: 20141105
  6. ALDACTONE [Concomitant]
     Active Substance: SPIRONOLACTONE

REACTIONS (10)
  - Depressed mood [None]
  - Weight decreased [None]
  - Vomiting [None]
  - Dizziness [None]
  - Balance disorder [None]
  - Retching [None]
  - Vertigo [None]
  - Disorientation [None]
  - Anxiety [None]
  - Vestibular disorder [None]

NARRATIVE: CASE EVENT DATE: 20141102
